FAERS Safety Report 18722267 (Version 2)
Quarter: 2021Q1

REPORT INFORMATION
  Report Type: Spontaneous
  Country: JP (occurrence: JP)
  Receive Date: 20210111
  Receipt Date: 20210119
  Transmission Date: 20210419
  Serious: Yes (Other)
  Sender: FDA-Public Use
  Company Number: JP-SUN PHARMACEUTICAL INDUSTRIES LTD-2020RR-272609

PATIENT
  Sex: Female

DRUGS (1)
  1. TEMOZOLOMIDE MSD [Suspect]
     Active Substance: TEMOZOLOMIDE
     Indication: OLIGODENDROGLIOMA
     Dosage: UNK, 4?WEEK CYCLES
     Route: 065

REACTIONS (3)
  - TP53 gene mutation [Unknown]
  - Neutropenia [Unknown]
  - Neoplasm progression [Unknown]
